FAERS Safety Report 5488674-8 (Version None)
Quarter: 2007Q4

REPORT INFORMATION
  Report Type: 
  Country: None (occurrence: None)
  Receive Date: 20071016
  Receipt Date: 20071010
  Transmission Date: 20080405
  Serious: Yes (Life-Threatening, Hospitalization)
  Sender: FDA-Public Use
  Company Number: 128-20785-07100559

PATIENT
  Age: 68 Year
  Sex: Female

DRUGS (1)
  1. THALIDOMIDE [Suspect]
     Indication: MULTIPLE MYELOMA
     Dosage: 200 MG, 4 IN 1 D, ORAL
     Route: 048
     Dates: start: 20070829

REACTIONS (6)
  - CARDIOMYOPATHY [None]
  - DENGUE FEVER [None]
  - HYPERTENSION [None]
  - MYOCARDITIS [None]
  - PNEUMONIA [None]
  - PULMONARY OEDEMA [None]
